FAERS Safety Report 14375147 (Version 1)
Quarter: 2018Q1

REPORT INFORMATION
  Report Type: Spontaneous
  Country: US (occurrence: US)
  Receive Date: 20180110
  Receipt Date: 20180110
  Transmission Date: 20180509
  Serious: Yes (Hospitalization)
  Sender: FDA-Public Use
  Company Number: None

PATIENT
  Age: 68 Year
  Sex: Female

DRUGS (7)
  1. ACYCLOVIR. [Concomitant]
     Active Substance: ACYCLOVIR
  2. MEPRON [Concomitant]
     Active Substance: ATOVAQUONE
  3. GABAPENTIN. [Concomitant]
     Active Substance: GABAPENTIN
  4. SYNTHROID [Concomitant]
     Active Substance: LEVOTHYROXINE SODIUM
  5. BOSULIF [Suspect]
     Active Substance: BOSUTINIB MONOHYDRATE
     Indication: LEUKOCYTOSIS
     Route: 048
     Dates: start: 20171013
  6. VORICONAZOLE. [Concomitant]
     Active Substance: VORICONAZOLE
  7. ATOVAQUONE. [Concomitant]
     Active Substance: ATOVAQUONE

REACTIONS (5)
  - Streptococcal infection [None]
  - Staphylococcal infection [None]
  - Pyrexia [None]
  - Constipation [None]
  - Pneumonia [None]

NARRATIVE: CASE EVENT DATE: 20171125
